FAERS Safety Report 20759653 (Version 1)
Quarter: 2022Q2

REPORT INFORMATION
  Report Type: Spontaneous
  Country: US (occurrence: US)
  Receive Date: 20220427
  Receipt Date: 20220427
  Transmission Date: 20220721
  Serious: No
  Sender: FDA-Public Use
  Company Number: US-BioHaven Pharmaceuticals-2021BHV003072

PATIENT
  Age: 58 Year

DRUGS (1)
  1. NURTEC ODT [Suspect]
     Active Substance: RIMEGEPANT SULFATE
     Indication: Prophylaxis
     Dosage: NO LONGER TAKING THE MEDICATION. THIS WAS A PREVENTATIVE PRESCRIPTION.
     Route: 065

REACTIONS (1)
  - Gastrointestinal disorder [Unknown]
